FAERS Safety Report 17222590 (Version 2)
Quarter: 2021Q2

REPORT INFORMATION
  Report Type: Spontaneous
  Country: US (occurrence: US)
  Receive Date: 20200102
  Receipt Date: 20210414
  Transmission Date: 20210716
  Serious: Yes (Hospitalization, Other)
  Sender: FDA-Public Use
  Company Number: US-ASTRAZENECA-2019SF90021

PATIENT
  Age: 18057 Day
  Sex: Female
  Weight: 175.1 kg

DRUGS (56)
  1. PRILOSEC [Suspect]
     Active Substance: OMEPRAZOLE MAGNESIUM
     Indication: GASTROOESOPHAGEAL REFLUX DISEASE
     Dosage: GENERIC
     Route: 065
     Dates: end: 2014
  2. PROTONIX [Suspect]
     Active Substance: PANTOPRAZOLE SODIUM
     Indication: GASTROOESOPHAGEAL REFLUX DISEASE
     Route: 065
     Dates: start: 199101, end: 201611
  3. MORPHINE [Concomitant]
     Active Substance: MORPHINE
     Indication: PAIN
     Dates: start: 20160907
  4. DECADRON [Concomitant]
     Active Substance: DEXAMETHASONE
  5. IBUPROFEN. [Concomitant]
     Active Substance: IBUPROFEN
  6. OXYCOD [Concomitant]
  7. NEXIUM [Suspect]
     Active Substance: ESOMEPRAZOLE MAGNESIUM
     Indication: GASTROOESOPHAGEAL REFLUX DISEASE
     Route: 048
     Dates: start: 199101, end: 201611
  8. HEPARIN [Concomitant]
     Active Substance: HEPARIN SODIUM
  9. PREDNISONE. [Concomitant]
     Active Substance: PREDNISONE
  10. PROAIR HFA [Concomitant]
     Active Substance: ALBUTEROL SULFATE
  11. LEVOFLOXACIN. [Concomitant]
     Active Substance: LEVOFLOXACIN
  12. AZITHROMYCIN ANHYDROUS. [Concomitant]
     Active Substance: AZITHROMYCIN ANHYDROUS
  13. EPINEPHRINE. [Concomitant]
     Active Substance: EPINEPHRINE
  14. NEXIUM [Suspect]
     Active Substance: ESOMEPRAZOLE MAGNESIUM
     Indication: GASTROOESOPHAGEAL REFLUX DISEASE
     Route: 048
     Dates: start: 2001, end: 2016
  15. PREVACID [Suspect]
     Active Substance: LANSOPRAZOLE
     Indication: GASTROOESOPHAGEAL REFLUX DISEASE
     Route: 065
     Dates: start: 1995, end: 2016
  16. ZOFRAN [Concomitant]
     Active Substance: ONDANSETRON HYDROCHLORIDE
  17. AMOXICILLIN. [Concomitant]
     Active Substance: AMOXICILLIN
  18. VENTOLIN [Concomitant]
     Active Substance: ALBUTEROL SULFATE
  19. MUPIROCIN. [Concomitant]
     Active Substance: MUPIROCIN
  20. NEXIUM [Suspect]
     Active Substance: ESOMEPRAZOLE MAGNESIUM
     Indication: GASTROOESOPHAGEAL REFLUX DISEASE
     Route: 048
     Dates: start: 1991, end: 2016
  21. PROTONIX [Suspect]
     Active Substance: PANTOPRAZOLE SODIUM
     Indication: GASTROOESOPHAGEAL REFLUX DISEASE
     Dosage: GENERIC
     Route: 065
     Dates: start: 2017
  22. RENVELA [Concomitant]
     Active Substance: SEVELAMER CARBONATE
     Indication: RENAL DISORDER
     Dates: start: 20170109
  23. FLUCONAZOLE. [Concomitant]
     Active Substance: FLUCONAZOLE
  24. DIAZEPAM. [Concomitant]
     Active Substance: DIAZEPAM
  25. CODEINE [Concomitant]
     Active Substance: CODEINE
  26. DEXAMETHASON [Concomitant]
     Active Substance: DEXAMETHASONE
  27. NYSTATIN. [Concomitant]
     Active Substance: NYSTATIN
  28. ALBUTEROL. [Concomitant]
     Active Substance: ALBUTEROL
  29. IPRATROPIUM [Concomitant]
     Active Substance: IPRATROPIUM
  30. DEXAMETHASONE. [Concomitant]
     Active Substance: DEXAMETHASONE
  31. LISINOPRIL. [Concomitant]
     Active Substance: LISINOPRIL
     Indication: CARDIAC FAILURE
     Dates: start: 201606
  32. METOPROLOL. [Concomitant]
     Active Substance: METOPROLOL
     Indication: HYPERTENSION
     Dates: start: 20170109
  33. PEPCID [Concomitant]
     Active Substance: FAMOTIDINE
  34. TAGAMET [Concomitant]
     Active Substance: CIMETIDINE
  35. OXYCODONE [Concomitant]
     Active Substance: OXYCODONE
  36. MONTELUKAST [Concomitant]
     Active Substance: MONTELUKAST SODIUM
  37. ENDOCET [Concomitant]
     Active Substance: ACETAMINOPHEN\OXYCODONE HYDROCHLORIDE
  38. MUPIROCIN. [Concomitant]
     Active Substance: MUPIROCIN
  39. PREVACID [Suspect]
     Active Substance: LANSOPRAZOLE
     Indication: GASTROOESOPHAGEAL REFLUX DISEASE
     Route: 065
     Dates: start: 199101, end: 201611
  40. PROTONIX [Suspect]
     Active Substance: PANTOPRAZOLE SODIUM
     Indication: GASTROOESOPHAGEAL REFLUX DISEASE
     Route: 065
     Dates: start: 2000, end: 2016
  41. OXYCODONE [Concomitant]
     Active Substance: OXYCODONE
     Indication: PAIN
     Dates: start: 20160907
  42. NAPROXEN. [Concomitant]
     Active Substance: NAPROXEN
  43. SYMBICORT [Concomitant]
     Active Substance: BUDESONIDE\FORMOTEROL FUMARATE DIHYDRATE
  44. PRILOSEC [Suspect]
     Active Substance: OMEPRAZOLE MAGNESIUM
     Indication: GASTROOESOPHAGEAL REFLUX DISEASE
     Route: 048
     Dates: start: 199101, end: 201611
  45. AMLODIPINE [Concomitant]
     Active Substance: AMLODIPINE BESYLATE
     Indication: HYPERTENSION
     Dates: start: 20161103, end: 20170901
  46. MORPHINE [Concomitant]
     Active Substance: MORPHINE
  47. CLINDAMYCIN. [Concomitant]
     Active Substance: CLINDAMYCIN
  48. CYCLOBENZAPRINE. [Concomitant]
     Active Substance: CYCLOBENZAPRINE
  49. PROCHLORPERAZINE. [Concomitant]
     Active Substance: PROCHLORPERAZINE
  50. CEPHALEXIN. [Concomitant]
     Active Substance: CEPHALEXIN
     Indication: RESPIRATORY TRACT INFECTION
     Dates: start: 201610
  51. FLUTICASONE. [Concomitant]
     Active Substance: FLUTICASONE
  52. OXYBUTYNIN. [Concomitant]
     Active Substance: OXYBUTYNIN CHLORIDE
  53. MUPIROCIN. [Concomitant]
     Active Substance: MUPIROCIN
  54. FLOVENT [Concomitant]
     Active Substance: FLUTICASONE PROPIONATE
  55. BECLOMETHASONE [Concomitant]
     Active Substance: BECLOMETHASONE
  56. ASPIRIN. [Concomitant]
     Active Substance: ASPIRIN

REACTIONS (6)
  - Acute kidney injury [Not Recovered/Not Resolved]
  - Chronic kidney disease [Not Recovered/Not Resolved]
  - Nephrogenic anaemia [Unknown]
  - Renal tubular necrosis [Unknown]
  - Renal failure [Not Recovered/Not Resolved]
  - End stage renal disease [Unknown]

NARRATIVE: CASE EVENT DATE: 20130703
